FAERS Safety Report 7176769-2 (Version None)
Quarter: 2010Q4

REPORT INFORMATION
  Report Type: 
  Country: None (occurrence: None)
  Receive Date: 20101207
  Receipt Date: 20101129
  Transmission Date: 20110411
  Serious: Yes (Hospitalization)
  Sender: FDA-Public Use
  Company Number: 2010006190

PATIENT
  Age: 19 Year
  Sex: Female

DRUGS (13)
  1. FENTORA [Suspect]
     Indication: BRAIN NEOPLASM
     Dosage: 6400 MCG (800 MCG, 1 IN 3 HR), (BU, 4800 MCG (600 MCG, 1 IN 3 HR), BU,
     Route: 002
     Dates: end: 20101124
  2. FENTORA [Suspect]
     Indication: COMPLEX REGIONAL PAIN SYNDROME
     Dosage: 6400 MCG (800 MCG, 1 IN 3 HR), (BU, 4800 MCG (600 MCG, 1 IN 3 HR), BU,
     Route: 002
     Dates: end: 20101124
  3. FENTORA [Suspect]
     Indication: BRAIN NEOPLASM
     Dosage: 6400 MCG (800 MCG, 1 IN 3 HR), (BU, 4800 MCG (600 MCG, 1 IN 3 HR), BU,
     Route: 002
     Dates: start: 20101128
  4. FENTORA [Suspect]
     Indication: COMPLEX REGIONAL PAIN SYNDROME
     Dosage: 6400 MCG (800 MCG, 1 IN 3 HR), (BU, 4800 MCG (600 MCG, 1 IN 3 HR), BU,
     Route: 002
     Dates: start: 20101128
  5. DURAGESIC-50 [Concomitant]
  6. BELLADONNA [Concomitant]
  7. MOTILIUM [Concomitant]
  8. SALAGEN [Concomitant]
  9. CORTEF [Concomitant]
  10. SYNTHROID [Concomitant]
  11. DDAVP [Concomitant]
  12. ORTHO TRI-CYCLEN [Concomitant]
  13. NEXIUM [Concomitant]

REACTIONS (6)
  - CONVULSION [None]
  - DEAFNESS TRANSITORY [None]
  - DRUG INEFFECTIVE [None]
  - DRUG PRESCRIBING ERROR [None]
  - DYSGEUSIA [None]
  - HEADACHE [None]
